FAERS Safety Report 7480009-4 (Version None)
Quarter: 2011Q2

REPORT INFORMATION
  Report Type: 
  Country: None (occurrence: None)
  Receive Date: 20110516
  Receipt Date: 20110506
  Transmission Date: 20111010
  Serious: Yes (Hospitalization)
  Sender: FDA-Public Use
  Company Number: 2006BI017634

PATIENT
  Age: 53 Year
  Sex: Male

DRUGS (2)
  1. AVONEX [Suspect]
     Indication: MULTIPLE SCLEROSIS
     Route: 030
     Dates: start: 20030405
  2. AVONEX [Suspect]
     Route: 030
     Dates: end: 20061117

REACTIONS (2)
  - MUSCLE ABSCESS [None]
  - PAIN IN EXTREMITY [None]
